FAERS Safety Report 6951077-0 (Version None)
Quarter: 2010Q3

REPORT INFORMATION
  Report Type: 
  Country: None (occurrence: None)
  Receive Date: 20100828
  Receipt Date: 20100312
  Transmission Date: 20110219
  Serious: No
  Sender: FDA-Public Use
  Company Number: US-ABBOTT-10P-163-0632259-00

PATIENT
  Sex: Male
  Weight: 113.5 kg

DRUGS (2)
  1. NIASPAN [Suspect]
     Indication: AORTIC ANEURYSM
     Route: 048
     Dates: start: 20100301
  2. NIASPAN [Suspect]
     Indication: AORTIC ANEURYSM REPAIR

REACTIONS (1)
  - JOINT SWELLING [None]
